FAERS Safety Report 10970012 (Version 1)
Quarter: 2015Q1

REPORT INFORMATION
  Report Type: Spontaneous
  Country: US (occurrence: None)
  Receive Date: 20150327
  Receipt Date: 20150327
  Transmission Date: 20150721
  Serious: Yes (Death, Hospitalization)
  Sender: FDA-Public Use
  Company Number: FK201501401

PATIENT
  Age: 29 Year
  Sex: Female

DRUGS (2)
  1. IVERMECTIN. [Suspect]
     Active Substance: IVERMECTIN
  2. METHYLPREDNISOLONE (MANUFACTURER UNKNOWN) (METHYLPREDNISOLONE SODIUM SUCCINATE)(METHYLPREDNISOLONE SODIUM SUCCINATE) [Suspect]
     Active Substance: METHYLPREDNISOLONE
     Indication: PRODUCT USED FOR UNKNOWN INDICATION

REACTIONS (3)
  - Toxic epidermal necrolysis [None]
  - Drug ineffective [None]
  - Pseudomonal sepsis [None]
